FAERS Safety Report 23878301 (Version 2)
Quarter: 2024Q2

REPORT INFORMATION
  Report Type: Report from Study
  Country: FR (occurrence: FR)
  Receive Date: 20240521
  Receipt Date: 20240625
  Transmission Date: 20240716
  Serious: Yes (Other)
  Sender: FDA-Public Use
  Company Number: FR-TAKEDA-2024TUS035637

PATIENT
  Sex: Female

DRUGS (1)
  1. FRUQUINTINIB [Suspect]
     Active Substance: FRUQUINTINIB
     Indication: Colon cancer metastatic
     Dosage: 5 MILLIGRAM, QD
     Route: 065
     Dates: start: 20240313, end: 20240411

REACTIONS (5)
  - Gastrointestinal neoplasm [Unknown]
  - Colon cancer metastatic [Unknown]
  - Metastases to lung [Unknown]
  - Metastases to liver [Unknown]
  - Drug ineffective [Unknown]
